FAERS Safety Report 9393105 (Version 2)
Quarter: 2013Q3

REPORT INFORMATION
  Report Type: Spontaneous
  Country: JP (occurrence: JP)
  Receive Date: 20130710
  Receipt Date: 20130731
  Transmission Date: 20140515
  Serious: Yes (Other)
  Sender: FDA-Public Use
  Company Number: JP-PFIZER INC-2013201650

PATIENT
  Sex: 0

DRUGS (6)
  1. JZOLOFT [Suspect]
     Indication: DEPRESSION
     Dosage: 75 MG, 1X/DAY
     Route: 064
     Dates: start: 201112, end: 20121217
  2. JZOLOFT [Suspect]
     Dosage: 25 MG/DAY
     Route: 064
     Dates: start: 20130525, end: 20130525
  3. LAMICTAL [Concomitant]
     Indication: MOOD ALTERED
     Dosage: 100 MG, 1X/DAY
     Route: 064
     Dates: start: 20120428, end: 20121217
  4. BEZATOL [Concomitant]
     Indication: HYPERCHOLESTEROLAEMIA
     Dosage: 200 MG, 2X/DAY
     Route: 064
     Dates: start: 20120811, end: 20121217
  5. BEZATOL [Concomitant]
     Indication: HYPERTRIGLYCERIDAEMIA
  6. LONASEN [Concomitant]
     Indication: NERVOUSNESS
     Dosage: 2 MG, 1X/DAY
     Route: 064
     Dates: start: 20121215, end: 20121217

REACTIONS (2)
  - Maternal exposure during pregnancy [Recovered/Resolved]
  - Foetal hypokinesia [Recovered/Resolved]
